FAERS Safety Report 10599388 (Version 4)
Quarter: 2015Q1

REPORT INFORMATION
  Report Type: Spontaneous
  Country: BE (occurrence: BE)
  Receive Date: 20141121
  Receipt Date: 20150318
  Transmission Date: 20150720
  Serious: Yes (Hospitalization, Other)
  Sender: FDA-Public Use
  Company Number: BE-GLAXOSMITHKLINE-BE2014GSK024298

PATIENT
  Age: 76 Year
  Sex: Female
  Weight: 52 kg

DRUGS (3)
  1. RELVAR ELLIPTA [Suspect]
     Active Substance: FLUTICASONE FUROATE\VILANTEROL TRIFENATATE
     Indication: BRONCHITIS
     Dosage: UNK
     Dates: start: 20141107, end: 20141108
  2. ACETYLCYSTEIN [Concomitant]
     Active Substance: ACETYLCYSTEINE
     Indication: PRODUCT USED FOR UNKNOWN INDICATION
     Dosage: 600 MG, QD
     Dates: start: 20141107, end: 20141108
  3. MOXIFLOXACIN HYDROCHLORIDE. [Concomitant]
     Active Substance: MOXIFLOXACIN HYDROCHLORIDE
     Indication: PRODUCT USED FOR UNKNOWN INDICATION
     Dosage: 400 MG, QD
     Dates: start: 20141107, end: 20141108

REACTIONS (7)
  - Dementia [Unknown]
  - Cerebrovascular accident [Unknown]
  - Drug administration error [Unknown]
  - Confusional state [Recovered/Resolved]
  - Dementia Alzheimer^s type [Unknown]
  - Bradyphrenia [Recovered/Resolved]
  - Product quality issue [Unknown]

NARRATIVE: CASE EVENT DATE: 20141106
